FAERS Safety Report 19789010 (Version 1)
Quarter: 2021Q3

REPORT INFORMATION
  Report Type: Report from Study
  Country: CO (occurrence: CO)
  Receive Date: 20210904
  Receipt Date: 20210904
  Transmission Date: 20211014
  Serious: Yes (Death, Other)
  Sender: FDA-Public Use
  Company Number: CO-TAKEDA-2021TUS055103

PATIENT
  Age: 65 Year
  Sex: Male
  Weight: 65 kg

DRUGS (6)
  1. PARACETAMOL [Concomitant]
     Active Substance: ACETAMINOPHEN
     Indication: ANALGESIC THERAPY
     Dosage: 1000 MILLIGRAM, Q8HR
     Route: 048
     Dates: start: 20210507, end: 20210830
  2. FOLATE [Concomitant]
     Active Substance: FOLATE SODIUM
     Indication: FOLATE DEFICIENCY
     Dosage: 5 MILLIGRAM, QD
     Route: 048
     Dates: start: 20210611, end: 20210830
  3. PONATINIB [Suspect]
     Active Substance: PONATINIB
     Indication: CHRONIC MYELOID LEUKAEMIA
     Dosage: 30 MILLIGRAM
     Route: 048
     Dates: start: 20170108, end: 20210830
  4. BECLOMETASONE DIPROPIONATE [Concomitant]
     Active Substance: BECLOMETHASONE DIPROPIONATE
     Indication: STEROID THERAPY
     Dosage: UNK UNK, Q8HR
     Route: 055
     Dates: start: 20210507, end: 20210830
  5. LEVODROPROPIZINE [Concomitant]
     Active Substance: LEVODROPROPIZINE
     Indication: ANTITUSSIVE THERAPY
     Dosage: 10 MILLILITER, Q8HR
     Route: 048
     Dates: start: 20210507, end: 20210830
  6. ALUMINUM HYDROXIDE. [Concomitant]
     Active Substance: ALUMINUM HYDROXIDE
     Indication: PROPHYLAXIS
     Dosage: UNK, Q6HR
     Route: 048
     Dates: start: 20210616, end: 20210830

REACTIONS (1)
  - Cardiac arrest [Fatal]

NARRATIVE: CASE EVENT DATE: 20210831
